FAERS Safety Report 8129440-4 (Version None)
Quarter: 2012Q1

REPORT INFORMATION
  Report Type: 
  Country: None (occurrence: None)
  Receive Date: 20120103
  Receipt Date: 20111121
  Transmission Date: 20120608
  Serious: Yes (Other)
  Sender: FDA-Public Use
  Company Number: AE-2011-001876

PATIENT
  Age: 57 Year
  Sex: Female
  Weight: 58.9676 kg

DRUGS (7)
  1. WELLBUTRIN [Concomitant]
  2. INCIVEK [Suspect]
     Dosage: 2250 MG (750 MG, 1 IN 8 HR), ORAL
     Route: 048
     Dates: start: 20110914
  3. PEGASYS [Concomitant]
  4. OMEPRAZOLE [Concomitant]
  5. ERGOCALCIFEROL [Concomitant]
  6. RIBAVIRIN [Concomitant]
  7. ZOVIRAX [Concomitant]

REACTIONS (7)
  - ANAEMIA [None]
  - ABDOMINAL PAIN UPPER [None]
  - DYSPEPSIA [None]
  - DYSGEUSIA [None]
  - FATIGUE [None]
  - EMOTIONAL DISTRESS [None]
  - NAUSEA [None]
